FAERS Safety Report 6698840-1 (Version None)
Quarter: 2010Q2

REPORT INFORMATION
  Report Type: 
  Country: None (occurrence: None)
  Receive Date: 20100427
  Receipt Date: 20100422
  Transmission Date: 20101027
  Serious: Yes (Hospitalization)
  Sender: FDA-Public Use
  Company Number: PHHY2010CH25172

PATIENT
  Age: 31 Year
  Sex: Female

DRUGS (3)
  1. PARLODEL [Suspect]
     Indication: MASTITIS POSTPARTUM
     Dosage: 1 MG/DAY
     Dates: start: 20090708, end: 20090701
  2. AZICLAV [Suspect]
     Indication: MASTITIS POSTPARTUM
     Dosage: 3G/DAY
     Dates: start: 20090708, end: 20090710
  3. MEFENAMIC ACID [Suspect]
     Indication: MASTITIS POSTPARTUM
     Dosage: 2500 MG TOTAL
     Dates: start: 20090701, end: 20090710

REACTIONS (5)
  - CHEST PAIN [None]
  - DYSPNOEA [None]
  - MEDIASTINAL MASS [None]
  - TYPE I HYPERSENSITIVITY [None]
  - URTICARIA [None]
